FAERS Safety Report 7502582-X (Version None)
Quarter: 2011Q2

REPORT INFORMATION
  Report Type: 
  Country: None (occurrence: None)
  Receive Date: 20110517
  Receipt Date: 20110502
  Transmission Date: 20111010
  Serious: Yes (Hospitalization)
  Sender: FDA-Public Use
  Company Number: DEP10_00125_2011

PATIENT
  Age: 57 Year
  Sex: Female

DRUGS (3)
  1. GABAPENTIN [Suspect]
     Indication: HOT FLUSH
     Dosage: (1800 MG DAILY OR PLACEBO ORAL)
     Route: 048
     Dates: start: 20101118, end: 20110423
  2. CALCIUM WITH VITAMIN D [Concomitant]
  3. MAGNESIUM W/POTASSIUM [Concomitant]

REACTIONS (4)
  - MENORRHAGIA [None]
  - GASTROENTERITIS [None]
  - ANAEMIA [None]
  - HYPOTHERMIA [None]
